FAERS Safety Report 22328645 (Version 1)
Quarter: 2023Q2

REPORT INFORMATION
  Report Type: Spontaneous
  Country: US (occurrence: US)
  Receive Date: 20230517
  Receipt Date: 20230517
  Transmission Date: 20230722
  Serious: No
  Sender: FDA-Public Use
  Company Number: US-RADIUS HEALTH INC.-2023US001027

PATIENT
  Age: 68 Year
  Sex: Female

DRUGS (1)
  1. TYMLOS [Suspect]
     Active Substance: ABALOPARATIDE
     Indication: Osteoporosis
     Dosage: 80 MICROGRAM, QD
     Route: 058
     Dates: start: 202303

REACTIONS (13)
  - Blood pressure increased [Unknown]
  - Paraesthesia [Unknown]
  - Muscular weakness [Unknown]
  - Orthostatic intolerance [Unknown]
  - Hypoaesthesia [Unknown]
  - Fatigue [Unknown]
  - Heart rate increased [Unknown]
  - Bone pain [Recovered/Resolved]
  - Headache [Unknown]
  - Palpitations [Recovered/Resolved]
  - Accidental overdose [Recovered/Resolved]
  - Wrong technique in product usage process [Unknown]
  - Anxiety [Recovered/Resolved]

NARRATIVE: CASE EVENT DATE: 20230301
